FAERS Safety Report 17032208 (Version 2)
Quarter: 2019Q4

REPORT INFORMATION
  Report Type: Spontaneous
  Country: SI (occurrence: SI)
  Receive Date: 20191114
  Receipt Date: 20191212
  Transmission Date: 20200122
  Serious: Yes (Hospitalization)
  Sender: FDA-Public Use
  Company Number: SI-JNJFOC-20191107287

PATIENT
  Age: 79 Year
  Sex: Male

DRUGS (7)
  1. RIVAROXABAN [Suspect]
     Active Substance: RIVAROXABAN
     Indication: CEREBROVASCULAR ACCIDENT PROPHYLAXIS
     Dosage: 20 MG, QD
     Route: 048
     Dates: start: 20190313, end: 20190419
  2. EUTHYROX [Concomitant]
     Active Substance: LEVOTHYROXINE SODIUM
     Dosage: 100  G, TIW
  3. PLIVIT D3 [Concomitant]
     Active Substance: CHOLECALCIFEROL
     Dosage: 35 GTT, OW
  4. BILOBIL [Concomitant]
     Active Substance: GINKGO
     Dosage: UNK
  5. RIVAROXABAN [Suspect]
     Active Substance: RIVAROXABAN
     Indication: ATRIAL FIBRILLATION
  6. AMOXIKLAV [Concomitant]
     Indication: BLISTER
     Dosage: UNK
  7. AMOXICILLIN+CLAVULANIC ACID [Concomitant]
     Active Substance: AMOXICILLIN\CLAVULANIC ACID
     Dosage: UNK

REACTIONS (1)
  - Liver disorder [Recovered/Resolved]

NARRATIVE: CASE EVENT DATE: 20190313
